FAERS Safety Report 9456063 (Version 1)
Quarter: 2013Q3

REPORT INFORMATION
  Report Type: Spontaneous
  Country: FR (occurrence: None)
  Receive Date: 20130808
  Receipt Date: 20130808
  Transmission Date: 20140515
  Serious: Yes (Hospitalization)
  Sender: FDA-Public Use
  Company Number: 2013CP000089

PATIENT
  Age: 49 Year
  Sex: Male

DRUGS (8)
  1. PERFALGAN [Suspect]
     Dosage: 1 GM; IV
     Route: 042
     Dates: start: 20130109
  2. CONTRAMAL [Suspect]
     Route: 042
     Dates: start: 20130109
  3. KETOPROFEN [Suspect]
     Route: 042
     Dates: start: 20130109
  4. POVIDONE IODINE [Suspect]
     Dosage: CUT
     Dates: start: 20130109
  5. SUFENTA [Suspect]
     Route: 042
     Dates: start: 20130109
  6. PROPOFOL [Suspect]
     Route: 042
     Dates: start: 20130109
  7. METRONIDAZOLE [Suspect]
     Route: 042
     Dates: start: 20130109
  8. ONDANSETRON HCL [Suspect]
     Route: 042
     Dates: start: 20130109

REACTIONS (5)
  - Vomiting [None]
  - Urticaria [None]
  - Pain [None]
  - Post procedural complication [None]
  - Contraindication to medical treatment [None]
